FAERS Safety Report 23253135 (Version 2)
Quarter: 2023Q4

REPORT INFORMATION
  Report Type: Report from Study
  Country: US (occurrence: US)
  Receive Date: 20231202
  Receipt Date: 20231211
  Transmission Date: 20240109
  Serious: Yes (Other)
  Sender: FDA-Public Use
  Company Number: US-ABBVIE-5521368

PATIENT
  Sex: Male
  Weight: 90.718 kg

DRUGS (3)
  1. IMBRUVICA [Suspect]
     Active Substance: IBRUTINIB
     Indication: Chronic lymphocytic leukaemia
     Dosage: FORM STRENGTH: 420 MG
     Route: 048
     Dates: start: 20221122, end: 2023
  2. IMBRUVICA [Suspect]
     Active Substance: IBRUTINIB
     Indication: Chronic lymphocytic leukaemia
     Dosage: DRUG START DATE FEB 2023 AND END DATE 2023
     Route: 048
     Dates: start: 20230214
  3. IMBRUVICA [Suspect]
     Active Substance: IBRUTINIB
     Indication: Chronic lymphocytic leukaemia
     Dosage: DRUG START DATE 2023?FORM STRENGTH: 280 MG
     Route: 048

REACTIONS (6)
  - Fibula fracture [Recovering/Resolving]
  - Muscle spasms [Recovered/Resolved]
  - Fall [Unknown]
  - Pain [Recovering/Resolving]
  - Foot operation [Recovering/Resolving]
  - Mobility decreased [Unknown]

NARRATIVE: CASE EVENT DATE: 20220101
